FAERS Safety Report 4563719-8 (Version None)
Quarter: 2005Q1

REPORT INFORMATION
  Report Type: 
  Country: None (occurrence: None)
  Receive Date: 20050121
  Receipt Date: 20050107
  Transmission Date: 20050727
  Serious: Yes (Other)
  Sender: FDA-Public Use
  Company Number: 2005004219

PATIENT
  Sex: Female
  Weight: 56.6996 kg

DRUGS (23)
  1. NEURONTIN [Suspect]
     Indication: FIBROMYALGIA
     Dosage: 100 MG, ORAL
     Route: 048
  2. GABAPENTIN [Suspect]
     Indication: FIBROMYALGIA
     Dates: start: 20040101
  3. LEVOTHYROXINE SODIUM [Concomitant]
  4. LOSARTAN POTASSIUM [Concomitant]
  5. FAMOTIDINE [Concomitant]
  6. VERAPAMIL [Concomitant]
  7. TRAZODONE (TRAZODONE) [Concomitant]
  8. TIZANIDINE (TIZANIDINE) [Concomitant]
  9. CEVIMELINE HYDROCHLORIDE (CEVIMELINE HYDROCHLORIDE) [Concomitant]
  10. ALL OTHER THERAPEUTIC PRODUCTS (ALL OTHER THERAPEUTIC PRODUCTS) [Concomitant]
  11. ERYTHROMYCIN [Concomitant]
  12. CONJUGATED ESTROGENS [Concomitant]
  13. ALL OTHER THERAPEUTIC PRODUCTS (ALL OTHER THERAPEUTIC PRODUCTS) [Concomitant]
  14. MULTIVITAMINS WITH MINERALS (MULTIVITAMINS WITH MINERALS) [Concomitant]
  15. B-KOMPLEX ^LECIVA^ (CALCIUM PANTOTRENATE, NICOTINAMIDE, PYRIDOXINE HYD [Concomitant]
  16. FISH OIL (FISH OIL) [Concomitant]
  17. MAGNESIUM (MAGNESIUM) [Concomitant]
  18. GLUCOSAMINE (GLUCOSAMINE) [Concomitant]
  19. CALCIUM (CALCIUM) [Concomitant]
  20. ASPIRIN [Concomitant]
  21. ACETAMINOPHEN [Concomitant]
  22. TEARS NATURALE (DEXTRAN 70, HYPROMELLOSE) [Concomitant]
  23. CARMELLOSE SODIUM (CARMELLOSE SODIUM) [Concomitant]

REACTIONS (7)
  - BODY HEIGHT DECREASED [None]
  - CONDITION AGGRAVATED [None]
  - DRUG EFFECT DECREASED [None]
  - NERVE INJURY [None]
  - PARAESTHESIA [None]
  - PHARMACEUTICAL PRODUCT COMPLAINT [None]
  - PRURITUS [None]
